FAERS Safety Report 8586911 (Version 5)
Quarter: 2012Q4

REPORT INFORMATION
  Report Type: 
  Country: US (occurrence: US)
  Receive Date: 20120530
  Receipt Date: 20121114
  Transmission Date: 20130627
  Serious: Yes (Hospitalization)
  Sender: FDA-Public Use
  Company Number: US-MYLANLABS-2012S1010597

PATIENT
  Age: 17 Year
  Sex: Male
  Weight: 61.24 kg

DRUGS (3)
  1. AZATHIOPRINE [Suspect]
     Indication: AUTOIMMUNE HEPATITIS
     Route: 048
     Dates: start: 20110217, end: 20111210
  2. PREDNISONE [Concomitant]
     Dates: start: 20110303, end: 20110501
  3. AMPICILLIN [Concomitant]
     Dates: start: 20110307

REACTIONS (3)
  - Aplastic anaemia [Not Recovered/Not Resolved]
  - Visual acuity reduced [Not Recovered/Not Resolved]
  - Pancytopenia [None]
